FAERS Safety Report 16489811 (Version 1)
Quarter: 2019Q3

REPORT INFORMATION
  Report Type: Spontaneous
  Country: US (occurrence: US)
  Receive Date: 20190627
  Receipt Date: 20190627
  Transmission Date: 20191004
  Serious: Yes (Hospitalization)
  Sender: FDA-Public Use
  Company Number: None

PATIENT
  Age: 58 Year
  Sex: Female

DRUGS (1)
  1. XOLAIR [Suspect]
     Active Substance: OMALIZUMAB
     Indication: IDIOPATHIC URTICARIA
     Dosage: ?          OTHER FREQUENCY:Q4Q;??
     Route: 058
     Dates: start: 20190412, end: 20190624

REACTIONS (3)
  - Pruritus [None]
  - Hypoaesthesia oral [None]
  - Headache [None]

NARRATIVE: CASE EVENT DATE: 20190624
